FAERS Safety Report 6961354-5 (Version None)
Quarter: 2010Q3

REPORT INFORMATION
  Report Type: 
  Country: None (occurrence: None)
  Receive Date: 20100901
  Receipt Date: 20100825
  Transmission Date: 20110219
  Serious: Yes (Other)
  Sender: FDA-Public Use
  Company Number: B0667344A

PATIENT
  Sex: Female
  Weight: 79 kg

DRUGS (17)
  1. LAPATINIB [Suspect]
     Route: 065
     Dates: start: 20090730
  2. CAPECITABINE [Suspect]
     Route: 048
     Dates: start: 20090828, end: 20091023
  3. METFORMIN [Concomitant]
  4. GLYBURIDE [Concomitant]
  5. REGULAR INSULIN [Concomitant]
  6. FLUOROURACIL [Concomitant]
     Dates: start: 20070401, end: 20070701
  7. EPIRUBICIN [Concomitant]
     Dates: start: 20070401, end: 20070701
  8. CYCLOPHOSPHAMIDE [Concomitant]
     Dates: start: 20070401, end: 20070701
  9. TRASTUZUMAB [Concomitant]
     Dates: start: 20070901, end: 20071101
  10. TRASTUZUMAB [Concomitant]
     Dates: start: 20071101, end: 20080301
  11. TRASTUZUMAB [Concomitant]
     Route: 042
     Dates: start: 20080401, end: 20080801
  12. ASPIRIN [Concomitant]
     Route: 048
  13. DEXAMETHASONE [Concomitant]
     Route: 042
     Dates: start: 20090227
  14. LOPRESSOR [Concomitant]
     Dosage: 100MG TWICE PER DAY
     Route: 048
  15. TRIATEC [Concomitant]
     Route: 048
  16. SIVASTIN [Concomitant]
     Route: 048
  17. LANSOPRAZOLE [Concomitant]
     Route: 048

REACTIONS (5)
  - BLOOD BILIRUBIN INCREASED [None]
  - HEPATIC ENZYME INCREASED [None]
  - HEPATOTOXICITY [None]
  - METASTASES TO CENTRAL NERVOUS SYSTEM [None]
  - METASTASES TO LIVER [None]
